FAERS Safety Report 17802480 (Version 1)
Quarter: 2020Q2

REPORT INFORMATION
  Report Type: Spontaneous
  Country: US (occurrence: US)
  Receive Date: 20200518
  Receipt Date: 20200518
  Transmission Date: 20200714
  Serious: No
  Sender: FDA-Public Use
  Company Number: None

PATIENT
  Age: 30 Year
  Sex: Male
  Weight: 81.6 kg

DRUGS (1)
  1. OPENBIOME FECAL TRANSPLATE 250ML [Suspect]
     Active Substance: FECAL MICROBIOTA
     Indication: CLOSTRIDIUM DIFFICILE COLITIS
     Route: 054
     Dates: start: 20200317, end: 20200317

REACTIONS (2)
  - Probiotic therapy [None]
  - Product contamination microbial [None]

NARRATIVE: CASE EVENT DATE: 20200317
